FAERS Safety Report 18581003 (Version 1)
Quarter: 2020Q4

REPORT INFORMATION
  Report Type: Spontaneous
  Country: CO (occurrence: CO)
  Receive Date: 20201204
  Receipt Date: 20201204
  Transmission Date: 20210114
  Serious: Yes (Hospitalization)
  Sender: FDA-Public Use
  Company Number: CO-BIOMARINAP-CO-2020-133719

PATIENT
  Age: 12 Year
  Sex: Female

DRUGS (1)
  1. VIMIZIM [Suspect]
     Active Substance: ELOSULFASE ALFA
     Indication: MUCOPOLYSACCHARIDOSIS IV
     Route: 042

REACTIONS (5)
  - Tracheostomy [Unknown]
  - Knee deformity [Unknown]
  - Tongue necrosis [Unknown]
  - Mobility decreased [Unknown]
  - Developmental hip dysplasia [Unknown]
